FAERS Safety Report 7462765-4 (Version None)
Quarter: 2011Q2

REPORT INFORMATION
  Report Type: 
  Country: None (occurrence: None)
  Receive Date: 20110506
  Receipt Date: 20091105
  Transmission Date: 20111010
  Serious: Yes (Death, Other)
  Sender: FDA-Public Use
  Company Number: US-BAYER-2011-005954

PATIENT
  Age: 74 Year
  Sex: Male
  Weight: 72.109 kg

DRUGS (27)
  1. CARDIOPLEGIA [Concomitant]
     Dosage: UNK
     Dates: start: 20051130, end: 20051130
  2. PLASMALYTE 56 IN 5% DEXTROSE [Concomitant]
     Dosage: 500 ML, UNK
     Dates: start: 20051130, end: 20051130
  3. MAGNESIUM SULFATE [Concomitant]
     Dosage: 2 G, UNK
     Dates: start: 20051130, end: 20051130
  4. TRASYLOL [Suspect]
     Indication: CORONARY ARTERY BYPASS
     Dosage: 400 ML, LOADING DOSE
     Route: 042
     Dates: start: 20051130, end: 20051130
  5. LIDOCAINE [Concomitant]
     Dosage: UNK
     Route: 042
     Dates: start: 20051130, end: 20051130
  6. SODIUM BICARBONATE [Concomitant]
     Dosage: 50 MBQ, UNK
     Dates: start: 20051130, end: 20051130
  7. LEVOPHED [Concomitant]
     Dosage: UNK
     Route: 042
     Dates: start: 20051130, end: 20051130
  8. TOPROL-XL [Concomitant]
     Dosage: 25MG EVENING
  9. LIPITOR [Concomitant]
     Dosage: 20MG DAILY
     Route: 048
  10. WARFARIN [Concomitant]
     Dosage: 8MG ALTERNATING WITH 6 MG
  11. WARFARIN [Concomitant]
     Dosage: UNK
  12. VERSED [Concomitant]
     Dosage: UNK
     Route: 042
     Dates: start: 20051130, end: 20051130
  13. PROPOFOL [Concomitant]
     Dosage: UNK
     Route: 042
     Dates: start: 20051130, end: 20051130
  14. CEFUROXIME [Concomitant]
     Dosage: UNK
     Route: 042
     Dates: start: 20051130, end: 20051130
  15. ALBUMIN (HUMAN) [Concomitant]
     Dosage: 25 G, UNK
     Dates: start: 20051130, end: 20051130
  16. RED BLOOD CELLS [Concomitant]
     Dosage: 125 ML, UNK
     Route: 042
  17. PRINIVIL [Concomitant]
     Dosage: 10 MG, QD
     Route: 048
  18. VASOPRESSIN [VASOPRESSIN] [Concomitant]
     Dosage: UNK
     Route: 042
     Dates: start: 20051130, end: 20051130
  19. TOPROL-XL [Concomitant]
     Dosage: 50 MG MORNING
     Route: 048
  20. SUFENTA PRESERVATIVE FREE [Concomitant]
     Dosage: UNK
     Dates: start: 20051130, end: 20051130
  21. EPINEPHRINE [Concomitant]
     Dosage: UNK
     Route: 042
     Dates: start: 20051130, end: 20051130
  22. HEPARIN [Concomitant]
     Dosage: 5000 U, FOLLOWED BY 25,000U
     Route: 042
     Dates: start: 20051130, end: 20051130
  23. TRASYLOL [Suspect]
     Indication: CARDIAC OPERATION
     Dosage: 50CC/HR INFUSION
     Dates: start: 20051130, end: 20051130
  24. TRASYLOL [Suspect]
  25. ACETYLSALICYLIC ACID SRT [Concomitant]
     Dosage: 81 MG, QD
     Route: 048
  26. MANNITOL [Concomitant]
     Dosage: 25 G, UNK
     Dates: start: 20051130, end: 20051130
  27. INSULIN [Concomitant]
     Dosage: UNK
     Dates: start: 20051130, end: 20051130

REACTIONS (10)
  - DEATH [None]
  - MULTI-ORGAN FAILURE [None]
  - RENAL FAILURE [None]
  - PAIN [None]
  - HEPATIC FAILURE [None]
  - EMOTIONAL DISTRESS [None]
  - STRESS [None]
  - UNEVALUABLE EVENT [None]
  - ANXIETY [None]
  - FEAR [None]
